FAERS Safety Report 9236231 (Version 1)
Quarter: 2013Q2

REPORT INFORMATION
  Report Type: Report from Study
  Country: BE (occurrence: BE)
  Receive Date: 20130417
  Receipt Date: 20130417
  Transmission Date: 20140414
  Serious: Yes (Other)
  Sender: FDA-Public Use
  Company Number: BE-BAYER-2013-045531

PATIENT
  Age: 64 Year
  Sex: Male

DRUGS (2)
  1. SORAFENIB [Suspect]
     Indication: RENAL CANCER METASTATIC
  2. ZOMETA [Suspect]
     Indication: RENAL CANCER METASTATIC

REACTIONS (1)
  - Osteonecrosis of jaw [Not Recovered/Not Resolved]
